FAERS Safety Report 21827814 (Version 4)
Quarter: 2023Q1

REPORT INFORMATION
  Report Type: Report from Study
  Country: JP (occurrence: JP)
  Receive Date: 20230106
  Receipt Date: 20230324
  Transmission Date: 20230418
  Serious: Yes (Death, Hospitalization, Other)
  Sender: FDA-Public Use
  Company Number: JP-ABBVIE-22K-087-4529220-00

PATIENT
  Age: 75 Year
  Sex: Male
  Weight: 62 kg

DRUGS (7)
  1. VENCLEXTA [Suspect]
     Active Substance: VENETOCLAX
     Indication: Acute myeloid leukaemia
     Dosage: 50 MILLIGRAM
     Route: 048
     Dates: start: 20210802
  2. VENCLEXTA [Suspect]
     Active Substance: VENETOCLAX
     Indication: Acute myeloid leukaemia
     Dosage: LAST ADMIN DATE: 2021
     Route: 048
     Dates: start: 20210406
  3. VENCLEXTA [Suspect]
     Active Substance: VENETOCLAX
     Indication: Acute myeloid leukaemia
     Dosage: 50 MILLIGRAM
     Route: 048
     Dates: start: 20210406, end: 20210727
  4. VENCLEXTA [Suspect]
     Active Substance: VENETOCLAX
     Indication: Acute myeloid leukaemia
     Route: 048
     Dates: start: 20210728, end: 20211027
  5. AZACITIDINE [Suspect]
     Active Substance: AZACITIDINE
     Indication: Acute myeloid leukaemia
     Route: 050
     Dates: start: 20210406
  6. NOXAFIL [Suspect]
     Active Substance: POSACONAZOLE
     Indication: Infection prophylaxis
     Route: 048
     Dates: start: 20210403
  7. FEBUXOSTAT [Concomitant]
     Active Substance: FEBUXOSTAT
     Indication: Prophylaxis
     Route: 048
     Dates: start: 20210405, end: 20210409

REACTIONS (9)
  - Septic shock [Fatal]
  - Febrile neutropenia [Recovered/Resolved]
  - Neutrophil count decreased [Recovered/Resolved]
  - Platelet count decreased [Recovering/Resolving]
  - Erythema [Recovered/Resolved]
  - Hypokalaemia [Recovered/Resolved]
  - Anaemia [Recovering/Resolving]
  - Liver disorder [Recovered/Resolved]
  - Sepsis [Recovered/Resolved]

NARRATIVE: CASE EVENT DATE: 20210406
